FAERS Safety Report 6303704-9 (Version None)
Quarter: 2009Q3

REPORT INFORMATION
  Report Type: 
  Country: None (occurrence: None)
  Receive Date: 20090807
  Receipt Date: 20090807
  Transmission Date: 20100115
  Serious: Yes (Death, Hospitalization)
  Sender: FDA-Public Use
  Company Number: None

PATIENT
  Sex: Male
  Weight: 50.8 kg

DRUGS (10)
  1. MEMANTINE HCL [Suspect]
     Dosage: 350 MG
  2. INSULIN ASPART [Concomitant]
  3. COLACE [Concomitant]
  4. DECADRON [Concomitant]
  5. FERROUS SULFATE TAB [Concomitant]
  6. HEPARIN [Concomitant]
  7. MEMANTINE/PLACEBO [Concomitant]
  8. SENNA [Concomitant]
  9. TYLENOL W/ CODEINE [Concomitant]
  10. ZOFRAN [Concomitant]

REACTIONS (2)
  - AGGRESSION [None]
  - METASTATIC CARCINOMA OF THE BLADDER [None]
